FAERS Safety Report 10404569 (Version 2)
Quarter: 2014Q3

REPORT INFORMATION
  Report Type: Spontaneous
  Country: US (occurrence: US)
  Receive Date: 20140824
  Receipt Date: 20140824
  Transmission Date: 20150326
  Serious: Yes (Hospitalization, Other)
  Sender: FDA-Public Use
  Company Number: US-009507513-2010SP012140

PATIENT
  Sex: Female
  Weight: 121.56 kg

DRUGS (1)
  1. NUVARING [Suspect]
     Active Substance: ETHINYL ESTRADIOL\ETONOGESTREL
     Indication: MENSTRUATION IRREGULAR
     Route: 067
     Dates: start: 20070306, end: 20080114

REACTIONS (9)
  - Hypertension [Unknown]
  - Salpingitis [Unknown]
  - Uterine enlargement [Unknown]
  - Ovarian cyst [Unknown]
  - Deep vein thrombosis [Recovered/Resolved]
  - Tendonitis [Unknown]
  - Fibrocystic breast disease [Unknown]
  - Tendon rupture [Unknown]
  - Peripheral venous disease [Unknown]

NARRATIVE: CASE EVENT DATE: 200712
